FAERS Safety Report 7343696-7 (Version None)
Quarter: 2011Q1

REPORT INFORMATION
  Report Type: 
  Country: None (occurrence: None)
  Receive Date: 20110310
  Receipt Date: 20101102
  Transmission Date: 20110831
  Serious: No
  Sender: FDA-Public Use
  Company Number: A0890468A

PATIENT
  Age: 73 Year
  Sex: Female

DRUGS (1)
  1. NICORETTE [Suspect]
     Indication: SMOKING CESSATION THERAPY
     Dosage: 6GUM CUMULATIVE DOSE
     Route: 002
     Dates: start: 20101028, end: 20101030

REACTIONS (12)
  - GINGIVAL DISORDER [None]
  - TOOTHACHE [None]
  - PHARYNGEAL DISORDER [None]
  - THERMAL BURN [None]
  - GINGIVAL PAIN [None]
  - STOMATITIS [None]
  - LIP DISORDER [None]
  - ORAL DISCOMFORT [None]
  - OROPHARYNGEAL PAIN [None]
  - PRODUCT QUALITY ISSUE [None]
  - THROAT IRRITATION [None]
  - ORAL PAIN [None]
